FAERS Safety Report 4334721-6 (Version None)
Quarter: 2004Q2

REPORT INFORMATION
  Report Type: 
  Country: None (occurrence: None)
  Receive Date: 20040407
  Receipt Date: 20040407
  Transmission Date: 20050107
  Serious: Yes (Hospitalization)
  Sender: FDA-Public Use
  Company Number: None

PATIENT
  Sex: Female
  Weight: 63.5036 kg

DRUGS (3)
  1. ENBREL [Suspect]
     Indication: RHEUMATOID ARTHRITIS
     Dosage: 25 MG BIW SUBCUTANEOUS
     Route: 058
     Dates: start: 19981222, end: 20030401
  2. ARAVA [Suspect]
     Indication: RHEUMATOID ARTHRITIS
     Dosage: 20 MG QD ORAL
     Route: 048
     Dates: start: 20001205, end: 20030402
  3. PREDNISONE [Concomitant]

REACTIONS (2)
  - LYMPHOMA [None]
  - SUPERIOR VENA CAVAL OCCLUSION [None]
